FAERS Safety Report 15842803 (Version 2)
Quarter: 2019Q1

REPORT INFORMATION
  Report Type: Spontaneous
  Country: JP (occurrence: JP)
  Receive Date: 20190118
  Receipt Date: 20190124
  Transmission Date: 20190417
  Serious: Yes (Hospitalization)
  Sender: FDA-Public Use
  Company Number: JP-ASTRAZENECA-2019SE05788

PATIENT
  Age: 32 Year
  Sex: Female
  Weight: 63.9 kg

DRUGS (1)
  1. DAPAGLIFLOZIN. [Suspect]
     Active Substance: DAPAGLIFLOZIN
     Indication: DIABETES MELLITUS
     Dosage: DOSE UNKNOWN
     Route: 048

REACTIONS (4)
  - Abdominal pain upper [Unknown]
  - Pollakiuria [Unknown]
  - Diabetic ketoacidosis [Unknown]
  - Weight decreased [Unknown]
